FAERS Safety Report 9820498 (Version 3)
Quarter: 2014Q1

REPORT INFORMATION
  Report Type: Spontaneous
  Country: DK (occurrence: HU)
  Receive Date: 20140116
  Receipt Date: 20140313
  Transmission Date: 20141002
  Serious: Yes (Hospitalization)
  Sender: FDA-Public Use
  Company Number: HU-FRI-1000052875

PATIENT
  Age: 36 Year
  Sex: Female
  Weight: 63 kg

DRUGS (3)
  1. ESCITALOPRAM [Suspect]
     Indication: PANIC DISORDER
     Dosage: 5 MG
     Route: 048
     Dates: start: 20131208, end: 20131215
  2. ESCITALOPRAM [Suspect]
     Indication: PANIC DISORDER
     Dosage: 10 MG
     Route: 048
     Dates: start: 20131216, end: 20140104
  3. FRONTIN [Suspect]
     Indication: ANXIETY
     Dates: start: 2009

REACTIONS (2)
  - Metrorrhagia [Recovered/Resolved]
  - Endometrial hyperplasia [Recovered/Resolved]
